FAERS Safety Report 23530458 (Version 1)
Quarter: 2024Q1

REPORT INFORMATION
  Report Type: Spontaneous
  Country: JP (occurrence: JP)
  Receive Date: 20240216
  Receipt Date: 20240216
  Transmission Date: 20240410
  Serious: Yes (Other)
  Sender: FDA-Public Use
  Company Number: JP-ASTELLAS-2024JP001006

PATIENT
  Age: 9 Decade
  Sex: Female

DRUGS (1)
  1. PADCEV [Suspect]
     Active Substance: ENFORTUMAB VEDOTIN-EJFV
     Indication: Ureteric cancer metastatic
     Dosage: 1.25 MG/KG, EVERY OTHER WEEK
     Route: 065
     Dates: start: 20230127

REACTIONS (2)
  - Metastases to central nervous system [Unknown]
  - Product use issue [Unknown]

NARRATIVE: CASE EVENT DATE: 20230127
